FAERS Safety Report 8813885 (Version 1)
Quarter: 2012Q4

REPORT INFORMATION
  Report Type: 
  Country: CO (occurrence: CO)
  Receive Date: 20120928
  Receipt Date: 20120928
  Transmission Date: 20130627
  Serious: Yes (Other)
  Sender: FDA-Public Use
  Company Number: CO-AMGEN-COLSP2012060866

PATIENT
  Age: 40 Year
  Sex: Female

DRUGS (5)
  1. ENBREL [Suspect]
     Indication: RHEUMATOID ARTHRITIS
     Dosage: 50 mg, weekly
     Route: 058
     Dates: start: 201002, end: 20100308
  2. ENBREL [Suspect]
     Dosage: 50 mg, weekly
     Route: 058
     Dates: start: 201003, end: 201006
  3. METHOTREXATE [Suspect]
     Indication: RHEUMATOID ARTHRITIS
     Dosage: 2.5 mg (3 tablets per day), 3x/day
     Route: 048
     Dates: start: 1989
  4. MEDROL                             /00049601/ [Suspect]
     Indication: RHEUMATOID ARTHRITIS
     Dosage: 4 mg, 1x/day
     Route: 048
     Dates: start: 1989
  5. IBUPROFEN [Suspect]
     Dosage: 800 mg, 1x/day
     Route: 048
     Dates: start: 2009

REACTIONS (4)
  - Osteoporosis [Not Recovered/Not Resolved]
  - Vaginal haemorrhage [Unknown]
  - Endometriosis [Recovered/Resolved]
  - Vaginal discharge [Recovered/Resolved]
